FAERS Safety Report 21504541 (Version 1)
Quarter: 2022Q4

REPORT INFORMATION
  Report Type: Spontaneous
  Country: US (occurrence: US)
  Receive Date: 20221025
  Receipt Date: 20221025
  Transmission Date: 20230113
  Serious: No
  Sender: FDA-Public Use
  Company Number: US-MYLANLABS-2022M1092656

PATIENT
  Sex: Male

DRUGS (2)
  1. GLATIRAMER ACETATE [Suspect]
     Active Substance: GLATIRAMER ACETATE
     Indication: Product used for unknown indication
     Dosage: 20 MILLIGRAM
     Route: 065
  2. DEVICE [Suspect]
     Active Substance: DEVICE
     Indication: Product used for unknown indication
     Dosage: UNK
     Route: 065

REACTIONS (3)
  - Injection site haemorrhage [Unknown]
  - Device issue [Unknown]
  - Wrong device used [Unknown]
